FAERS Safety Report 8821416 (Version 2)
Quarter: 2012Q4

REPORT INFORMATION
  Report Type: 
  Country: US (occurrence: US)
  Receive Date: 20121002
  Receipt Date: 20121114
  Transmission Date: 20130627
  Serious: Yes (Hospitalization)
  Sender: FDA-Public Use
  Company Number: US-009507513-1204USA04336

PATIENT
  Age: 47 Year
  Sex: Male

DRUGS (2)
  1. ISENTRESS [Suspect]
     Route: 048
  2. TRUVADA [Concomitant]

REACTIONS (1)
  - Neutropenia [Not Recovered/Not Resolved]
